FAERS Safety Report 9463285 (Version 7)
Quarter: 2013Q4

REPORT INFORMATION
  Report Type: Report from Study
  Country: DE (occurrence: DE)
  Receive Date: 20130819
  Receipt Date: 20131022
  Transmission Date: 20140711
  Serious: Yes (Life-Threatening, Hospitalization)
  Sender: FDA-Public Use
  Company Number: DE-ROCHE-1262393

PATIENT
  Age: 61 Year
  Sex: Female
  Weight: 73 kg

DRUGS (11)
  1. PEG-INTERFERON ALFA 2A [Suspect]
     Indication: CHRONIC HEPATITIS C
     Route: 058
     Dates: start: 20130517
  2. PEG-INTERFERON ALFA 2A [Suspect]
     Dosage: MOST RECENT DOSE ON 04/SEP/2013
     Route: 058
     Dates: start: 20130521
  3. RIBAVIRIN [Suspect]
     Indication: CHRONIC HEPATITIS C
     Route: 048
     Dates: start: 20130419
  4. RIBAVIRIN [Suspect]
     Route: 048
  5. RIBAVIRIN [Suspect]
     Dosage: DATE OF MOST RECENT DOSE PRIOR TO SAE: 13/AUG/2013
     Route: 048
  6. RIBAVIRIN [Suspect]
     Dosage: MOST RECENT DOSE ON 04/SEP/2013
     Route: 048
     Dates: start: 20130420
  7. BOCEPREVIR [Suspect]
     Indication: CHRONIC HEPATITIS C
     Route: 048
     Dates: start: 20130612
  8. BOCEPREVIR [Suspect]
     Dosage: DATE OF MOST RECENT DOSE PRIOR TO SAE: 13/AUG/2013
     Route: 048
  9. BOCEPREVIR [Suspect]
     Dosage: MOST RECENT DOSE ON 04/SEP/2013
     Route: 048
     Dates: start: 20130612
  10. SPIRONOLACTONE [Concomitant]
     Indication: HEPATIC CIRRHOSIS
     Route: 048
     Dates: start: 201205, end: 20130813
  11. PANTOPRAZOLE [Concomitant]
     Indication: GASTRITIS
     Route: 048
     Dates: start: 201205, end: 20130813

REACTIONS (6)
  - Hyponatraemia [Recovering/Resolving]
  - Asthenia [Recovering/Resolving]
  - Decreased appetite [Not Recovered/Not Resolved]
  - Dehydration [Recovering/Resolving]
  - Rhabdomyolysis [Recovering/Resolving]
  - Myalgia [Recovering/Resolving]
